FAERS Safety Report 17188072 (Version 1)
Quarter: 2019Q4

REPORT INFORMATION
  Report Type: Spontaneous
  Country: GB (occurrence: GB)
  Receive Date: 20191221
  Receipt Date: 20191221
  Transmission Date: 20200122
  Serious: Yes (Other)
  Sender: FDA-Public Use
  Company Number: GB-ACCORD-165663

PATIENT
  Age: 59 Year
  Sex: Female
  Weight: 71 kg

DRUGS (8)
  1. INDAPAMIDE. [Concomitant]
     Active Substance: INDAPAMIDE
     Dosage: EACH MORNING
     Dates: start: 20191025
  2. LANTUS [Concomitant]
     Active Substance: INSULIN GLARGINE
     Dosage: USE AS DIRECTED
     Dates: start: 20181012
  3. METFORMIN [Concomitant]
     Active Substance: METFORMIN HYDROCHLORIDE
     Dates: start: 20181012
  4. ROSUVASTATIN/ROSUVASTATIN CALCIUM [Concomitant]
     Active Substance: ROSUVASTATIN CALCIUM
     Dosage: AT NIGHT
     Dates: start: 20181012
  5. LEVOTHYROXINE. [Concomitant]
     Active Substance: LEVOTHYROXINE
     Dosage: EACH MORNING
     Dates: start: 20181012
  6. CANDESARTAN. [Concomitant]
     Active Substance: CANDESARTAN
     Dates: start: 20181012
  7. AMLODIPINE [Suspect]
     Active Substance: AMLODIPINE BESYLATE
     Indication: PRODUCT USED FOR UNKNOWN INDICATION
     Dates: start: 20181012
  8. ADALAT [Concomitant]
     Active Substance: NIFEDIPINE
     Dates: start: 20181012

REACTIONS (2)
  - Headache [Unknown]
  - Nausea [Unknown]

NARRATIVE: CASE EVENT DATE: 20191104
